FAERS Safety Report 6204337-5 (Version None)
Quarter: 2009Q2

REPORT INFORMATION
  Report Type: 
  Country: None (occurrence: None)
  Receive Date: 20090522
  Receipt Date: 20090506
  Transmission Date: 20091009
  Serious: No
  Sender: FDA-Public Use
  Company Number: 8045814

PATIENT
  Age: 14 Year
  Sex: Male

DRUGS (2)
  1. KEPPRA [Suspect]
     Dosage: REC
     Route: 054
  2. KEPPRA [Suspect]

REACTIONS (1)
  - INCORRECT ROUTE OF DRUG ADMINISTRATION [None]
